FAERS Safety Report 5024925-1 (Version None)
Quarter: 2006Q2

REPORT INFORMATION
  Report Type: 
  Country: None (occurrence: None)
  Receive Date: 20060613
  Receipt Date: 20060607
  Transmission Date: 20061013
  Serious: Yes (Death)
  Sender: FDA-Public Use
  Company Number: US-JNJFOC-20060602083

PATIENT
  Sex: Female

DRUGS (1)
  1. FENTANYL TRANSDERMAL SYSTEM [Suspect]
     Indication: CANCER PAIN
     Route: 062

REACTIONS (1)
  - PANCREATIC CARCINOMA [None]
